FAERS Safety Report 7731712-X (Version None)
Quarter: 2011Q3

REPORT INFORMATION
  Report Type: 
  Country: None (occurrence: None)
  Receive Date: 20110906
  Receipt Date: 20110630
  Transmission Date: 20111222
  Serious: No
  Sender: FDA-Public Use
  Company Number: US-AMGEN-USASP2011033580

PATIENT
  Age: 84 Year
  Sex: Female

DRUGS (7)
  1. CALCIUM WITH VITAMIN D             /00944201/ [Concomitant]
  2. VITAMIN D [Concomitant]
  3. METOPROLOL TARTRATE [Concomitant]
  4. NAPROXEN (ALEVE) [Concomitant]
     Dosage: UNK
  5. THYROLAR [Concomitant]
  6. MULTIVITAMIN                       /00097801/ [Concomitant]
     Dosage: UNK
  7. PROLIA [Suspect]
     Indication: OSTEOPOROSIS POSTMENOPAUSAL
     Dosage: 60 MG, UNK
     Dates: start: 20101201

REACTIONS (2)
  - GOUT [None]
  - GAIT DISTURBANCE [None]
